FAERS Safety Report 17680795 (Version 5)
Quarter: 2020Q3

REPORT INFORMATION
  Report Type: Report from Study
  Country: DE (occurrence: DE)
  Receive Date: 20200417
  Receipt Date: 20200707
  Transmission Date: 20201102
  Serious: Yes (Life-Threatening, Hospitalization)
  Sender: FDA-Public Use
  Company Number: DE-ROCHE-2580078

PATIENT
  Age: 74 Year
  Sex: Female
  Weight: 86 kg

DRUGS (33)
  1. FLUVASTATIN [Concomitant]
     Active Substance: FLUVASTATIN SODIUM
     Indication: HYPERCHOLESTEROLAEMIA
     Route: 048
  2. PIPERACILLIN. [Concomitant]
     Active Substance: PIPERACILLIN SODIUM
     Indication: INFECTION
     Route: 042
     Dates: start: 20191028, end: 20191029
  3. TAZOBACTAM [Concomitant]
     Active Substance: TAZOBACTAM
     Indication: INFECTION
     Route: 042
     Dates: start: 20191028, end: 20191029
  4. METHYLPREDNISOLON [METHYLPREDNISOLONE] [Concomitant]
     Active Substance: METHYLPREDNISOLONE
     Indication: GENERAL PHYSICAL HEALTH DETERIORATION
     Route: 042
     Dates: start: 20191029, end: 20191029
  5. PREDNISOLONE. [Concomitant]
     Active Substance: PREDNISOLONE
     Route: 048
     Dates: start: 20191102, end: 20191104
  6. HYDROCORTISON [HYDROCORTISONE] [Concomitant]
     Route: 048
     Dates: start: 20191112
  7. VEMURAFENIB. [Suspect]
     Active Substance: VEMURAFENIB
     Route: 048
     Dates: start: 20191106, end: 20200225
  8. ASPIRIN. [Concomitant]
     Active Substance: ASPIRIN
     Indication: CEREBROVASCULAR ACCIDENT
     Route: 048
  9. METHYLPREDNISOLON [METHYLPREDNISOLONE] [Concomitant]
     Active Substance: METHYLPREDNISOLONE
     Indication: HYPOPHYSITIS
     Route: 042
     Dates: start: 20191028, end: 20191028
  10. FOSFOMYCIN [Concomitant]
     Active Substance: FOSFOMYCIN
     Indication: URINARY TRACT INFECTION
     Route: 048
  11. LORATADIN [Concomitant]
     Active Substance: LORATADINE
     Indication: RASH MACULO-PAPULAR
     Route: 048
     Dates: start: 20191105, end: 20191219
  12. LORATADIN [Concomitant]
     Active Substance: LORATADINE
     Route: 048
     Dates: start: 20191112, end: 20191219
  13. HYDROCORTISON [HYDROCORTISONE] [Concomitant]
     Route: 048
  14. KALIUMCHLORID [Concomitant]
     Active Substance: POTASSIUM CHLORIDE
     Indication: HYPOKALAEMIA
     Route: 042
     Dates: start: 20191105, end: 20191105
  15. FERROSANOL [Concomitant]
     Active Substance: FERROUS GLUCONATE
     Indication: IRON DEFICIENCY ANAEMIA
     Route: 048
  16. HYDROCORTISON [HYDROCORTISONE] [Concomitant]
     Route: 048
  17. HYDROCORTISON [HYDROCORTISONE] [Concomitant]
     Route: 048
     Dates: start: 20191110, end: 20191111
  18. VEMURAFENIB. [Suspect]
     Active Substance: VEMURAFENIB
     Indication: MALIGNANT MELANOMA
     Route: 048
     Dates: start: 20191018, end: 20191026
  19. PANTOPRAZOL [PANTOPRAZOLE] [Concomitant]
     Active Substance: PANTOPRAZOLE
     Route: 048
  20. L?THYROXINE [LEVOTHYROXINE] [Concomitant]
     Active Substance: LEVOTHYROXINE
     Indication: HYPOTHYROIDISM
     Route: 048
  21. METHYLPREDNISOLON [METHYLPREDNISOLONE] [Concomitant]
     Active Substance: METHYLPREDNISOLONE
     Route: 042
     Dates: start: 20191030, end: 20191030
  22. HYDROCORTISON [HYDROCORTISONE] [Concomitant]
     Indication: GENERAL PHYSICAL HEALTH DETERIORATION
     Route: 048
     Dates: start: 20191105, end: 20191109
  23. HYDROCORTISON [HYDROCORTISONE] [Concomitant]
     Route: 048
  24. HYDROCORTISON [HYDROCORTISONE] [Concomitant]
     Route: 048
  25. COBIMETINIB. [Suspect]
     Active Substance: COBIMETINIB
     Route: 048
     Dates: start: 20191105, end: 20200225
  26. HYDROCORTISON [HYDROCORTISONE] [Concomitant]
     Indication: HYPOPHYSITIS
     Route: 042
     Dates: start: 20191028, end: 20191028
  27. HYDROCORTISON [HYDROCORTISONE] [Concomitant]
     Indication: GENERAL PHYSICAL HEALTH DETERIORATION
     Route: 048
     Dates: start: 20191029, end: 20191104
  28. CEFPODOXIME [Concomitant]
     Active Substance: CEFPODOXIME
     Indication: URINARY TRACT INFECTION
     Route: 048
     Dates: start: 20191217, end: 20191224
  29. PREDNISOLONE. [Concomitant]
     Active Substance: PREDNISOLONE
     Route: 048
     Dates: start: 20191105, end: 20191107
  30. COBIMETINIB. [Suspect]
     Active Substance: COBIMETINIB
     Indication: MALIGNANT MELANOMA
     Route: 048
     Dates: start: 20191018, end: 20191026
  31. AMPHOTERICIN B. [Concomitant]
     Active Substance: AMPHOTERICIN B
     Indication: ORAL CANDIDIASIS
     Route: 048
     Dates: start: 20191028, end: 20191102
  32. COLECALCIFEROL [Concomitant]
     Active Substance: CHOLECALCIFEROL
     Indication: VITAMIN D DEFICIENCY
     Route: 048
     Dates: start: 20191028
  33. PREDNISOLONE. [Concomitant]
     Active Substance: PREDNISOLONE
     Indication: RASH MACULO-PAPULAR
     Route: 048
     Dates: start: 20191031, end: 20191101

REACTIONS (2)
  - Aortic valve stenosis [Not Recovered/Not Resolved]
  - Acute myocardial infarction [Recovered/Resolved]

NARRATIVE: CASE EVENT DATE: 20200225
